FAERS Safety Report 5337020-9 (Version None)
Quarter: 2007Q2

REPORT INFORMATION
  Report Type: 
  Country: None (occurrence: None)
  Receive Date: 20070523
  Receipt Date: 20070508
  Transmission Date: 20071010
  Serious: Yes (Hospitalization, Disabling)
  Sender: FDA-Public Use
  Company Number: GXKR2007JP04252

PATIENT
  Age: 75 Year
  Sex: Male

DRUGS (1)
  1. CEFOPERAZONE+SULBACTAM (NGX)(CEFOPERAZONE, SUBLACTAM) UNKNOWN [Suspect]
     Indication: PERITONEAL ABSCESS

REACTIONS (11)
  - ACTIVATED PARTIAL THROMBOPLASTIN TIME PROLONGED [None]
  - COAGULOPATHY [None]
  - EXTRADURAL HAEMATOMA [None]
  - GAIT DISTURBANCE [None]
  - ILEUS [None]
  - LIVER FUNCTION TEST ABNORMAL [None]
  - MUSCLE ATROPHY [None]
  - PARALYSIS [None]
  - POST PROCEDURAL COMPLICATION [None]
  - SENSORY DISTURBANCE [None]
  - VITAMIN K DEFICIENCY [None]
